FAERS Safety Report 12366894 (Version 1)
Quarter: 2016Q2

REPORT INFORMATION
  Report Type: Spontaneous
  Country: US (occurrence: US)
  Receive Date: 20160513
  Receipt Date: 20160513
  Transmission Date: 20160815
  Serious: No
  Sender: FDA-Public Use
  Company Number: US-ABBVIE-15P-163-1485154-00

PATIENT
  Sex: Female

DRUGS (1)
  1. GENGRAF [Suspect]
     Active Substance: CYCLOSPORINE
     Indication: PRODUCT USED FOR UNKNOWN INDICATION
     Route: 065

REACTIONS (9)
  - Fear of injection [Unknown]
  - Pain in extremity [Unknown]
  - Limb discomfort [Unknown]
  - Posture abnormal [Unknown]
  - Intervertebral disc protrusion [Unknown]
  - Nerve compression [Not Recovered/Not Resolved]
  - Disturbance in attention [Unknown]
  - Pain [Unknown]
  - Bursitis [Unknown]

NARRATIVE: CASE EVENT DATE: 201507
